FAERS Safety Report 7345018-4 (Version None)
Quarter: 2011Q1

REPORT INFORMATION
  Report Type: 
  Country: None (occurrence: None)
  Receive Date: 20110302
  Receipt Date: 20110218
  Transmission Date: 20110831
  Serious: Yes (Hospitalization)
  Sender: FDA-Public Use
  Company Number: 2011MA001678

PATIENT
  Age: 24 Year
  Sex: Male

DRUGS (7)
  1. ATROPINE [Concomitant]
  2. CITALOPRAM HYDROBROMIDE [Suspect]
     Indication: ANXIETY
     Dosage: 20 MG;PO
     Route: 048
     Dates: start: 20110128, end: 20110208
  3. SERETIDE [Concomitant]
  4. OMEPRAZOLE [Concomitant]
  5. DICLOFENAC [Concomitant]
  6. FLUOXETINE [Suspect]
     Indication: ANXIETY
     Dosage: 20 MG;PO
     Route: 048
     Dates: start: 20101231, end: 20110127
  7. AMOXICILLIN [Concomitant]

REACTIONS (8)
  - HYPERHIDROSIS [None]
  - TREMOR [None]
  - MUSCLE RIGIDITY [None]
  - MALAISE [None]
  - HEADACHE [None]
  - BODY TEMPERATURE FLUCTUATION [None]
  - MUSCLE TWITCHING [None]
  - VOMITING [None]
